FAERS Safety Report 8451482-X (Version None)
Quarter: 2012Q2

REPORT INFORMATION
  Report Type: 
  Country: None (occurrence: None)
  Receive Date: 20120620
  Receipt Date: 20120304
  Transmission Date: 20120825
  Serious: No
  Sender: FDA-Public Use
  Company Number: US-VERTEX PHARMACEUTICALS INC.-AE-2012-003120

PATIENT
  Sex: Male
  Weight: 77.18 kg

DRUGS (7)
  1. INCIVEK [Suspect]
     Indication: HEPATITIS C
     Route: 048
     Dates: start: 20120203
  2. RIBASPHERE [Concomitant]
     Indication: HEPATITIS C
     Route: 048
     Dates: start: 20120203
  3. PEGASYS [Concomitant]
     Indication: HEPATITIS C
     Dates: start: 20120203
  4. IBUPROFEN [Concomitant]
     Indication: PAIN
     Route: 048
  5. ACETAMINOPHEN [Concomitant]
     Indication: PAIN
     Route: 048
  6. BUPROPION HCL [Concomitant]
     Indication: DEPRESSION
     Route: 048
  7. LISINOPRIL [Concomitant]
     Indication: HYPERTENSION
     Route: 048

REACTIONS (1)
  - INCORRECT DRUG ADMINISTRATION DURATION [None]
